FAERS Safety Report 19412015 (Version 1)
Quarter: 2021Q2

REPORT INFORMATION
  Report Type: Spontaneous
  Country: US (occurrence: US)
  Receive Date: 20210614
  Receipt Date: 20210614
  Transmission Date: 20210717
  Serious: Yes (Other)
  Sender: FDA-Public Use
  Company Number: US-SA-2021SA183730

PATIENT
  Age: 89 Year
  Sex: Male

DRUGS (1)
  1. TAMSULOSIN HYDROCHLORIDE. [Suspect]
     Active Substance: TAMSULOSIN HYDROCHLORIDE
     Indication: PRODUCT USED FOR UNKNOWN INDICATION

REACTIONS (8)
  - Neck pain [Unknown]
  - Increased appetite [Unknown]
  - Haemoglobin decreased [Unknown]
  - Poor quality sleep [Unknown]
  - Neoplasm malignant [Unknown]
  - Headache [Unknown]
  - Nocturia [Unknown]
  - Weight increased [Unknown]

NARRATIVE: CASE EVENT DATE: 20210317
